FAERS Safety Report 8062898-8 (Version None)
Quarter: 2012Q1

REPORT INFORMATION
  Report Type: 
  Country: None (occurrence: None)
  Receive Date: 20120123
  Receipt Date: 20120123
  Transmission Date: 20120608
  Serious: No
  Sender: FDA-Public Use
  Company Number: None

PATIENT
  Sex: Female

DRUGS (1)
  1. CYTOXAN [Suspect]
     Indication: MULTIPLE SCLEROSIS
     Dosage: 600MG

REACTIONS (4)
  - PYREXIA [None]
  - POSTURE ABNORMAL [None]
  - MUSCLE SPASMS [None]
  - VOMITING [None]
